FAERS Safety Report 7500288-4 (Version None)
Quarter: 2011Q2

REPORT INFORMATION
  Report Type: 
  Country: None (occurrence: None)
  Receive Date: 20110524
  Receipt Date: 20100503
  Transmission Date: 20111010
  Serious: No
  Sender: FDA-Public Use
  Company Number: US-NOVEN-ALL1-2010-02599

PATIENT

DRUGS (1)
  1. DAYTRANA [Suspect]
     Dosage: 40 MG, 1X/DAY:QD (30 MG. PATCH WITH10 MG. PATCH DAILY)
     Route: 062

REACTIONS (3)
  - NO ADVERSE EVENT [None]
  - OVERDOSE [None]
  - OFF LABEL USE [None]
